FAERS Safety Report 19392181 (Version 1)
Quarter: 2021Q2

REPORT INFORMATION
  Report Type: Report from Study
  Country: IN (occurrence: IN)
  Receive Date: 20210608
  Receipt Date: 20210608
  Transmission Date: 20210717
  Serious: Yes (Death, Other)
  Sender: FDA-Public Use
  Company Number: IN-PFIZER INC-2021643129

PATIENT
  Sex: Female

DRUGS (3)
  1. GEMTUZUMAB OZOGAMICIN [Suspect]
     Active Substance: GEMTUZUMAB OZOGAMICIN
     Indication: ACUTE MYELOID LEUKAEMIA RECURRENT
     Dosage: 4.5 MG/KG
     Dates: start: 20210507
  2. GEMTUZUMAB OZOGAMICIN [Suspect]
     Active Substance: GEMTUZUMAB OZOGAMICIN
     Dosage: 4.5 MG/KG
     Dates: start: 20210510
  3. GEMTUZUMAB OZOGAMICIN [Suspect]
     Active Substance: GEMTUZUMAB OZOGAMICIN
     Dosage: 4.5 MG/KG
     Dates: start: 20210513

REACTIONS (3)
  - Mucosal inflammation [Recovered/Resolved]
  - Neutropenia [Recovered/Resolved]
  - Death [Fatal]
